FAERS Safety Report 18532030 (Version 1)
Quarter: 2020Q4

REPORT INFORMATION
  Report Type: Other
  Country: US (occurrence: US)
  Receive Date: 20201123
  Receipt Date: 20201123
  Transmission Date: 20210114
  Serious: Yes (Other)
  Sender: FDA-Public Use
  Company Number: US-ROCHE-2717390

PATIENT
  Age: 42 Year
  Sex: Female
  Weight: 59.02 kg

DRUGS (1)
  1. LUCENTIS [Suspect]
     Active Substance: RANIBIZUMAB
     Indication: RETINAL VEIN OCCLUSION
     Route: 050
     Dates: start: 20201104, end: 20201104

REACTIONS (8)
  - Eye haemorrhage [Not Recovered/Not Resolved]
  - Swelling of eyelid [Recovered/Resolved]
  - Chest pain [Not Recovered/Not Resolved]
  - Visual impairment [Unknown]
  - Headache [Recovered/Resolved]
  - Urticaria [Not Recovered/Not Resolved]
  - Night sweats [Not Recovered/Not Resolved]
  - Eye pain [Recovered/Resolved]

NARRATIVE: CASE EVENT DATE: 20201104
